FAERS Safety Report 5029148-8 (Version None)
Quarter: 2006Q2

REPORT INFORMATION
  Report Type: 
  Country: None (occurrence: None)
  Receive Date: 20060613
  Receipt Date: 20060606
  Transmission Date: 20061013
  Serious: Yes (Death, Hospitalization)
  Sender: FDA-Public Use
  Company Number: 200612154GDS

PATIENT
  Age: 92 Year
  Sex: Male

DRUGS (12)
  1. ASPIRIN [Suspect]
     Indication: DRUG USE FOR UNKNOWN INDICATION
     Dosage: 100 MG, TOTAL DAILY; ORAL
     Route: 048
     Dates: start: 20051130, end: 20051207
  2. PLAVIX [Suspect]
     Indication: DRUG USE FOR UNKNOWN INDICATION
     Dosage: 75 MG, TOTAL DAILY; ORAL
     Route: 048
     Dates: start: 20051130, end: 20051207
  3. VOLTAREN [Suspect]
     Indication: DRUG USE FOR UNKNOWN INDICATION
     Dosage: ORAL
     Route: 048
     Dates: end: 20051129
  4. PROSCAR [Concomitant]
  5. CORVATON RETARD [Concomitant]
  6. TORSEMIDE [Concomitant]
  7. ENATEC [Concomitant]
  8. DILZEM [Concomitant]
  9. ENALAPRIL MALEATE AND HYDROCHLOROTHIAZIDE [Concomitant]
  10. COLECALCIFEROL-CA [Concomitant]
  11. CO-RENITEN [Concomitant]
  12. CAL DE 3FF [Concomitant]

REACTIONS (12)
  - ANAEMIA [None]
  - BLOOD CREATININE INCREASED [None]
  - CARDIAC FAILURE [None]
  - GASTRIC ULCER [None]
  - GASTRIC ULCER HAEMORRHAGE [None]
  - GASTRITIS HAEMORRHAGIC [None]
  - GASTROOESOPHAGEAL REFLUX DISEASE [None]
  - HIATUS HERNIA [None]
  - HYPERTENSION [None]
  - HYPOVOLAEMIC SHOCK [None]
  - MELAENA [None]
  - MYOCARDIAL INFARCTION [None]
